FAERS Safety Report 10583489 (Version 2)
Quarter: 2014Q4

REPORT INFORMATION
  Report Type: Spontaneous
  Country: US (occurrence: None)
  Receive Date: 20141112
  Receipt Date: 20141126
  Transmission Date: 20150529
  Serious: Yes (Other)
  Sender: FDA-Public Use
  Company Number: 201409111

PATIENT
  Age: 65 Year
  Sex: Male
  Weight: 88.45 kg

DRUGS (3)
  1. TAMSULOSIN (TAMSULOSIN) [Concomitant]
     Active Substance: TAMSULOSIN
  2. XIAFLEX [Suspect]
     Active Substance: COLLAGENASE CLOSTRIDIUM HISTOLYTICUM
     Indication: PEYRONIE^S DISEASE
     Dosage: `1 IN 1 DAY NTRALESIONAL
     Dates: start: 20140902, end: 20140902
  3. TRENTAL  (PENTOXIFULLINE) [Concomitant]

REACTIONS (3)
  - Nephrolithiasis [None]
  - Penile swelling [None]
  - Penile haematoma [None]

NARRATIVE: CASE EVENT DATE: 20141029
